FAERS Safety Report 7530246-5 (Version None)
Quarter: 2011Q2

REPORT INFORMATION
  Report Type: 
  Country: None (occurrence: None)
  Receive Date: 20110607
  Receipt Date: 20110526
  Transmission Date: 20111010
  Serious: Yes (Hospitalization)
  Sender: FDA-Public Use
  Company Number: US-ASTRAZENECA-2010SE16305

PATIENT
  Age: 56 Year
  Sex: Female
  Weight: 117.9 kg

DRUGS (32)
  1. NEXIUM [Suspect]
     Route: 048
     Dates: start: 20080101, end: 20100601
  2. NEXIUM [Suspect]
     Route: 048
  3. LIPITOR [Concomitant]
     Route: 048
  4. TRICOR [Concomitant]
     Route: 048
  5. DEPAKOTE [Concomitant]
  6. SEROQUEL [Suspect]
     Route: 048
     Dates: start: 20080101, end: 20100601
  7. DIOVAN [Concomitant]
     Route: 048
  8. BENZOTROPINE MES [Concomitant]
     Route: 048
  9. PROVERA [Concomitant]
  10. SIMVASTATIN [Concomitant]
  11. NEXIUM [Suspect]
     Indication: GASTROOESOPHAGEAL REFLUX DISEASE
     Route: 048
     Dates: start: 20050101
  12. PRINIVIL [Concomitant]
  13. SEROQUEL [Suspect]
     Indication: SCHIZOAFFECTIVE DISORDER
     Route: 048
     Dates: start: 20030101, end: 20100601
  14. NAMENDA [Concomitant]
  15. ZOCOR [Concomitant]
  16. MIRAPEX [Concomitant]
     Route: 048
  17. CYMBALTA [Concomitant]
     Route: 048
  18. CENTRUM SILVER [Concomitant]
  19. RITALIN [Concomitant]
  20. SEROQUEL [Suspect]
     Route: 048
     Dates: start: 20100101
  21. RANITIDINE [Concomitant]
     Route: 048
  22. TRAZODONE HCL [Concomitant]
     Route: 048
  23. SEROQUEL [Suspect]
     Route: 048
     Dates: start: 20080101, end: 20100601
  24. SEROQUEL [Suspect]
     Route: 048
     Dates: start: 20100101
  25. ESTRADIOL [Concomitant]
  26. CELEXA [Concomitant]
  27. KLONOPIN [Concomitant]
  28. SEROQUEL [Suspect]
     Indication: BIPOLAR DISORDER
     Route: 048
     Dates: start: 20030101, end: 20100601
  29. ATENOLOL [Concomitant]
     Dosage: 12.5 DAILY
     Route: 048
  30. ASPIRIN [Concomitant]
  31. ARICEPT [Concomitant]
  32. HYDROCHLOROTHIAZIDE [Concomitant]

REACTIONS (20)
  - PNEUMONIA [None]
  - DIZZINESS [None]
  - BONE GRAFT [None]
  - TOOTH EXTRACTION [None]
  - DYSPEPSIA [None]
  - OROPHARYNGEAL PAIN [None]
  - DRY MOUTH [None]
  - INSOMNIA [None]
  - ASTHENIA [None]
  - CONFUSIONAL STATE [None]
  - HOSPITALISATION [None]
  - LETHARGY [None]
  - DYSPHAGIA [None]
  - HYPERTENSION [None]
  - URINARY INCONTINENCE [None]
  - DRUG DOSE OMISSION [None]
  - PULMONARY FIBROSIS [None]
  - FEELING OF BODY TEMPERATURE CHANGE [None]
  - COUGH [None]
  - DIARRHOEA [None]
